FAERS Safety Report 24379099 (Version 1)
Quarter: 2024Q3

REPORT INFORMATION
  Report Type: Spontaneous
  Country: GB (occurrence: GB)
  Receive Date: 20240930
  Receipt Date: 20240930
  Transmission Date: 20241017
  Serious: Yes (Death, Life-Threatening, Other)
  Sender: PFIZER
  Company Number: GB-002147023-NVSC2022GB230819

PATIENT
  Age: 64 Year
  Sex: Male
  Weight: 56 kg

DRUGS (17)
  1. PACLITAXEL [Suspect]
     Active Substance: PACLITAXEL
     Indication: Gastrooesophageal cancer
     Dosage: 144 MG, WEEKLY
     Route: 042
     Dates: start: 20220421, end: 20220930
  2. RAMUCIRUMAB [Suspect]
     Active Substance: RAMUCIRUMAB
     Indication: Gastrooesophageal cancer
     Dosage: 550 MG, CYCLIC (Q2W)
     Route: 042
     Dates: start: 20220421, end: 20220923
  3. GEVOKIZUMAB [Suspect]
     Active Substance: GEVOKIZUMAB
     Indication: Gastrooesophageal cancer
     Dosage: 120 MG, CYCLIC (Q4W)
     Route: 042
     Dates: start: 20220421, end: 20220923
  4. OMEPRAZOLE [Concomitant]
     Active Substance: OMEPRAZOLE
  5. OXYCONTIN [Concomitant]
     Active Substance: OXYCODONE HYDROCHLORIDE
  6. LORAZEPAM [Concomitant]
     Active Substance: LORAZEPAM
  7. DEXAMETHASONE [Concomitant]
     Active Substance: DEXAMETHASONE
  8. DOCUSATE SODIUM [Concomitant]
     Active Substance: DOCUSATE SODIUM
  9. POLYETHYLENE GLYCOLS [Concomitant]
     Active Substance: POLYETHYLENE GLYCOLS
  10. FLEET ENEMA [Concomitant]
     Active Substance: SODIUM PHOSPHATE, DIBASIC\SODIUM PHOSPHATE, MONOBASIC
  11. FLUCONAZOLE [Concomitant]
     Active Substance: FLUCONAZOLE
  12. PEPTAC [PANTOPRAZOLE] [Concomitant]
  13. ACETAMINOPHEN [Concomitant]
     Active Substance: ACETAMINOPHEN
  14. AUGMENTIN [Concomitant]
     Active Substance: AMOXICILLIN\CLAVULANATE POTASSIUM
  15. PAROXETINE [Concomitant]
     Active Substance: PAROXETINE
  16. SENNA LEAF [Concomitant]
     Active Substance: SENNA LEAF
  17. PREGABALIN [Concomitant]
     Active Substance: PREGABALIN

REACTIONS (3)
  - Sepsis [Fatal]
  - Cardiac arrest [Unknown]
  - Off label use [Unknown]

NARRATIVE: CASE EVENT DATE: 20220421
